FAERS Safety Report 21951873 (Version 1)
Quarter: 2023Q1

REPORT INFORMATION
  Report Type: Spontaneous
  Country: BR (occurrence: None)
  Receive Date: 20230203
  Receipt Date: 20230203
  Transmission Date: 20230418
  Serious: Yes (Hospitalization)
  Sender: FDA-Public Use
  Company Number: 2023A025216

PATIENT
  Age: 20118 Day
  Sex: Female

DRUGS (8)
  1. DAPAGLIFLOZIN [Suspect]
     Active Substance: DAPAGLIFLOZIN
     Indication: Diabetes mellitus
     Dosage: ONCE
     Route: 048
     Dates: start: 20221010, end: 20221013
  2. DAPAGLIFLOZIN [Suspect]
     Active Substance: DAPAGLIFLOZIN
     Indication: Renal failure
     Dosage: ONCE
     Route: 048
     Dates: start: 20221010, end: 20221013
  3. ATENOLOL [Concomitant]
     Active Substance: ATENOLOL
     Dates: start: 2021
  4. FUROSEMIDE [Concomitant]
     Active Substance: FUROSEMIDE
     Dates: start: 2021
  5. INSULIN NOS [Concomitant]
     Active Substance: INSULIN NOS
     Dates: start: 2021
  6. AMIODARONE [Concomitant]
     Active Substance: AMIODARONE
     Dates: start: 2021
  7. SIMVASTATIN [Concomitant]
     Active Substance: SIMVASTATIN
     Dates: start: 2021
  8. LOSARTAN [Concomitant]
     Active Substance: LOSARTAN
     Dates: start: 2021

REACTIONS (2)
  - Extremity necrosis [Recovered/Resolved with Sequelae]
  - Toe amputation [Unknown]

NARRATIVE: CASE EVENT DATE: 20221001
